FAERS Safety Report 26143049 (Version 1)
Quarter: 2025Q4

REPORT INFORMATION
  Report Type: Spontaneous
  Country: CN (occurrence: CN)
  Receive Date: 20251211
  Receipt Date: 20251211
  Transmission Date: 20260117
  Serious: Yes (Other)
  Sender: SHENZHEN TECHDOW PHARMACEUTICAL
  Company Number: CN-adr44030518216-HPR2025000836

PATIENT
  Age: 68 Year
  Sex: Male
  Weight: 65 kg

DRUGS (1)
  1. ENOXAPARIN SODIUM [Suspect]
     Active Substance: ENOXAPARIN SODIUM
     Indication: Anticoagulant therapy
     Dosage: 6000IU,QD
     Dates: start: 20251120, end: 20251121

REACTIONS (1)
  - Activated partial thromboplastin time prolonged [Recovering/Resolving]

NARRATIVE: CASE EVENT DATE: 20251122
